FAERS Safety Report 6096194-5 (Version None)
Quarter: 2009Q1

REPORT INFORMATION
  Report Type: 
  Country: None (occurrence: None)
  Receive Date: 20090227
  Receipt Date: 20080922
  Transmission Date: 20090719
  Serious: No
  Sender: FDA-Public Use
  Company Number: A0749647A

PATIENT
  Sex: Female

DRUGS (2)
  1. LAMICTAL [Suspect]
     Indication: DRUG USE FOR UNKNOWN INDICATION
     Dosage: 200MG PER DAY
  2. WINE [Suspect]
     Route: 048

REACTIONS (2)
  - DIZZINESS [None]
  - DRUG INTERACTION [None]
